FAERS Safety Report 7933655-5 (Version None)
Quarter: 2011Q4

REPORT INFORMATION
  Report Type: 
  Country: None (occurrence: None)
  Receive Date: 20111122
  Receipt Date: 20111110
  Transmission Date: 20120403
  Serious: Yes (Other)
  Sender: FDA-Public Use
  Company Number: PHHY2011CH099792

PATIENT
  Age: 75 Year
  Sex: Female

DRUGS (3)
  1. SANDIMMUNE [Suspect]
     Dosage: UNK
     Dates: start: 19970101
  2. ANGIOTENSIN II ANTAGONISTS [Concomitant]
  3. LIPID MODIFYING AGENTS [Concomitant]

REACTIONS (12)
  - PROTEINURIA [None]
  - RENAL FAILURE CHRONIC [None]
  - BLOOD CREATININE INCREASED [None]
  - NEPHROPATHY TOXIC [None]
  - TOXICITY TO VARIOUS AGENTS [None]
  - COMPLEMENT FACTOR C3 DECREASED [None]
  - RENAL ARTERIOSCLEROSIS [None]
  - MICROALBUMINURIA [None]
  - KIDNEY FIBROSIS [None]
  - VASCULAR INJURY [None]
  - RENAL TUBULAR ATROPHY [None]
  - BLOOD CHOLESTEROL INCREASED [None]
